FAERS Safety Report 22240758 (Version 1)
Quarter: 2023Q2

REPORT INFORMATION
  Report Type: Spontaneous
  Country: US (occurrence: US)
  Receive Date: 20230421
  Receipt Date: 20230421
  Transmission Date: 20230721
  Serious: No
  Sender: FDA-Public Use
  Company Number: US-MYLANLABS-2023M1032339

PATIENT
  Age: 49 Year

DRUGS (1)
  1. DILANTIN [Suspect]
     Active Substance: PHENYTOIN
     Indication: Product used for unknown indication
     Dosage: 3 DOSAGE FORM, QD (3 DF, 1X/DAY)
     Route: 065

REACTIONS (1)
  - Product prescribing error [Unknown]
